FAERS Safety Report 17352162 (Version 1)
Quarter: 2020Q1

REPORT INFORMATION
  Report Type: Spontaneous
  Country: US (occurrence: US)
  Receive Date: 20200130
  Receipt Date: 20200130
  Transmission Date: 20200409
  Serious: Yes (Hospitalization)
  Sender: FDA-Public Use
  Company Number: US-AAA PHARMACEUTICAL, INC.-2079632

PATIENT
  Age: 74 Year
  Sex: Male

DRUGS (4)
  1. CHOLESTEROL [Concomitant]
     Active Substance: CHOLESTEROL
  2. BETA BLOCKER [Concomitant]
     Active Substance: UNSPECIFIED INGREDIENT
  3. ISOSORBIDE. [Concomitant]
     Active Substance: ISOSORBIDE
  4. ASPIRIN. [Suspect]
     Active Substance: ASPIRIN
     Indication: MYOCARDIAL INFARCTION
     Route: 048
     Dates: start: 20191226, end: 20191230

REACTIONS (5)
  - Pneumonia [None]
  - Product residue present [None]
  - Hospitalisation [Recovered/Resolved]
  - Sepsis [None]
  - Urinary tract infection [None]

NARRATIVE: CASE EVENT DATE: 20191230
